FAERS Safety Report 7230803-X (Version None)
Quarter: 2011Q1

REPORT INFORMATION
  Report Type: 
  Country: None (occurrence: None)
  Receive Date: 20110118
  Receipt Date: 20110110
  Transmission Date: 20110831
  Serious: Yes (Hospitalization)
  Sender: FDA-Public Use
  Company Number: ES-SANOFI-AVENTIS-2011SA001894

PATIENT
  Age: 32 Year
  Sex: Male

DRUGS (5)
  1. AMOXICILLIN AND CLAVULANATE POTASSIUM [Suspect]
     Indication: INFECTION
     Route: 065
     Dates: start: 20091214, end: 20091215
  2. TAVANIC [Suspect]
     Route: 048
     Dates: start: 20091201, end: 20091222
  3. GENTA-GOBENS [Suspect]
     Route: 065
     Dates: start: 20091216, end: 20091217
  4. CLEXANE [Suspect]
     Route: 065
     Dates: start: 20091214, end: 20091222
  5. PENILEVEL [Suspect]
     Route: 065
     Dates: start: 20091215, end: 20091221

REACTIONS (1)
  - CHOLESTASIS [None]
